FAERS Safety Report 11145292 (Version 1)
Quarter: 2015Q2

REPORT INFORMATION
  Report Type: Spontaneous
  Country: US (occurrence: US)
  Receive Date: 20150528
  Receipt Date: 20150528
  Transmission Date: 20150821
  Serious: Yes (Hospitalization)
  Sender: FDA-Public Use
  Company Number: US-MALLINCKRODT-T201501235

PATIENT
  Age: 72 Year
  Sex: Male

DRUGS (1)
  1. H.P. ACTHAR [Suspect]
     Active Substance: CORTICOTROPIN
     Indication: FIBRILLARY GLOMERULONEPHRITIS
     Dosage: 80 U, BIWEEKLY
     Route: 058
     Dates: start: 20141229

REACTIONS (2)
  - Drug dose omission [Recovered/Resolved]
  - Oedema [Recovering/Resolving]

NARRATIVE: CASE EVENT DATE: 201501
